FAERS Safety Report 8851874 (Version 1)
Quarter: 2012Q4

REPORT INFORMATION
  Report Type: 
  Country: US (occurrence: US)
  Receive Date: 20121022
  Receipt Date: 20121022
  Transmission Date: 20130627
  Serious: No
  Sender: FDA-Public Use
  Company Number: US-PFIZER INC-2012259211

PATIENT
  Age: 78 Year
  Sex: Male

DRUGS (4)
  1. TOVIAZ [Suspect]
     Indication: MICTURITION DISORDER
     Dosage: 5 mg, daily
     Dates: start: 201209, end: 201209
  2. VESICARE [Suspect]
     Indication: MICTURITION DISORDER
     Dosage: UNK,daily
     Dates: start: 201206, end: 201209
  3. AMLODIPINE [Concomitant]
     Indication: AGITATION
     Dosage: 5 mg, daily
  4. ACETYLSALICYLIC ACID [Concomitant]
     Dosage: 81 mg, daily

REACTIONS (1)
  - Drug ineffective [Unknown]
